FAERS Safety Report 17569431 (Version 2)
Quarter: 2020Q1

REPORT INFORMATION
  Report Type: Spontaneous
  Country: FR (occurrence: FR)
  Receive Date: 20200323
  Receipt Date: 20200323
  Transmission Date: 20200409
  Serious: Yes (Hospitalization)
  Sender: FDA-Public Use
  Company Number: FR-BEH-2020114770

PATIENT
  Age: 70 Year
  Sex: Male
  Weight: 77 kg

DRUGS (9)
  1. ELIQUIS [Concomitant]
     Active Substance: APIXABAN
     Route: 065
  2. HYDROCORTISONE. [Concomitant]
     Active Substance: HYDROCORTISONE
     Route: 065
  3. CETIRIZINE DIHYDROCHLORIDE [Concomitant]
     Active Substance: CETIRIZINE HYDROCHLORIDE
     Route: 065
  4. BISOPROLOL HEMIFUMARATE [Concomitant]
     Active Substance: BISOPROLOL FUMARATE
     Route: 065
  5. PRIVIGEN [Suspect]
     Active Substance: HUMAN IMMUNOGLOBULIN G
     Indication: ACUTE FEBRILE NEUTROPHILIC DERMATOSIS
     Dosage: 40 GRAM, TOT
     Route: 042
     Dates: start: 20200305, end: 20200305
  6. PHOSPHONEUROS [Concomitant]
     Active Substance: CALCIUM PHOSPHATE, DIBASIC, ANHYDROUS\MAGNESIUM GLYCEROPHOSPHATE\PHOSPHORIC ACID\SODIUM PHOSPHATE, DIBASIC
     Route: 065
  7. LANSOPRAZOLE. [Concomitant]
     Active Substance: LANSOPRAZOLE
     Route: 065
  8. CALCIDOSE VITAMINE D [Concomitant]
     Active Substance: CALCIUM\CHOLECALCIFEROL
     Route: 065
  9. PARACETAMOL [Concomitant]
     Active Substance: ACETAMINOPHEN
     Route: 065

REACTIONS (10)
  - Chills [Recovering/Resolving]
  - Malaise [Recovering/Resolving]
  - Back pain [Recovering/Resolving]
  - Hyperthermia [Recovering/Resolving]
  - Tremor [Recovering/Resolving]
  - Infusion related reaction [Recovering/Resolving]
  - Hypertension [Recovering/Resolving]
  - Product use in unapproved indication [Unknown]
  - Tachycardia [Recovering/Resolving]
  - No adverse event [Unknown]

NARRATIVE: CASE EVENT DATE: 20200305
